FAERS Safety Report 10100521 (Version 1)
Quarter: 2014Q2

REPORT INFORMATION
  Report Type: Spontaneous
  Country: US (occurrence: US)
  Receive Date: 20140423
  Receipt Date: 20140423
  Transmission Date: 20141212
  Serious: Yes (Disabling)
  Sender: FDA-Public Use
  Company Number: US-GLAXOSMITHKLINE-A1069777A

PATIENT
  Age: 14 Year
  Sex: Male

DRUGS (3)
  1. LAMOTRIGINE [Suspect]
     Indication: CONVULSION
     Dosage: 250MG PER DAY
     Route: 048
     Dates: start: 201403
  2. LAMICTAL XR [Suspect]
     Indication: CONVULSION
     Route: 048
  3. ONFI [Concomitant]

REACTIONS (4)
  - Generalised tonic-clonic seizure [Unknown]
  - Convulsion [Unknown]
  - Drug ineffective [Unknown]
  - Blood glucose decreased [Unknown]
